FAERS Safety Report 10363045 (Version 1)
Quarter: 2014Q1

REPORT INFORMATION
  Report Type: Spontaneous
  Country: US (occurrence: None)
  Receive Date: 20140306
  Receipt Date: 20140306
  Transmission Date: 20141002
  Serious: Yes (Other)
  Sender: FDA-Public Use
  Company Number: 163-21880-13074040

PATIENT
  Age: 74 Year
  Sex: Male
  Weight: 78.4 kg

DRUGS (12)
  1. REVLIMID [Suspect]
     Indication: B-CELL LYMPHOMA
     Dosage: 25 MG, 21 IN 21 D, PO
     Route: 048
     Dates: start: 20130607
  2. ACYCLOVIR [Concomitant]
  3. ASPIRIN (ACETYLSALICYLIC ACID) [Concomitant]
  4. EYE HEALTH (EYE HEALTH) [Concomitant]
  5. FISH OIL CONCENTRATE (FISH OIL) [Concomitant]
  6. HYDROCODONE/ACETAMINOPHEN (REMEDEINE) [Concomitant]
  7. LEVOFLOXACIN [Concomitant]
  8. LIDOCAINE AND PRILOCAINE [Concomitant]
  9. MULTIVITAMINS (MULTIVITAMINS) [Concomitant]
  10. SULFAMETHOXAZOLE AND TRIMETHOPRIM (BACTRIM) (TABLETS) [Concomitant]
  11. TRAZODONE (TRAZODONE) [Concomitant]
  12. VITAMIN D (ERGOCALCIFEROL) [Concomitant]

REACTIONS (2)
  - Neutropenia [None]
  - Dyspnoea [None]
